FAERS Safety Report 7241439-9 (Version None)
Quarter: 2011Q1

REPORT INFORMATION
  Report Type: 
  Country: None (occurrence: None)
  Receive Date: 20110124
  Receipt Date: 20110120
  Transmission Date: 20110831
  Serious: Yes (Hospitalization)
  Sender: FDA-Public Use
  Company Number: GXKR2011DE00652

PATIENT
  Age: 54 Year
  Sex: Female

DRUGS (4)
  1. METEX [Concomitant]
     Indication: RHEUMATOID ARTHRITIS
     Dosage: 1 DF, QW
     Route: 048
  2. PREDNISOLONE [Suspect]
     Indication: SJOGREN'S SYNDROME
     Dosage: 2.5 MG, QD
     Route: 048
  3. FALITHROM ^HEXAL^ [Concomitant]
     Indication: AORTIC VALVE REPLACEMENT
     Route: 048
  4. ARAVA [Concomitant]
     Indication: RHEUMATOID ARTHRITIS
     Dosage: 20 MG, QD
     Route: 048

REACTIONS (1)
  - SUBDURAL HAEMATOMA [None]
